FAERS Safety Report 13651582 (Version 5)
Quarter: 2017Q3

REPORT INFORMATION
  Report Type: Spontaneous
  Country: CA (occurrence: CA)
  Receive Date: 20170614
  Receipt Date: 20170720
  Transmission Date: 20171127
  Serious: Yes (Other)
  Sender: FDA-Public Use
  Company Number: CA-JNJFOC-20170610602

PATIENT
  Sex: Female

DRUGS (14)
  1. BEARBERRY EXTRACT [Interacting]
     Active Substance: ARCTOSTAPHYLOS UVA-URSI LEAF\HOMEOPATHICS
     Indication: PRODUCT USED FOR UNKNOWN INDICATION
     Dosage: DOSAGE: UNKNOWN
     Route: 065
  2. SKULLCAP [Interacting]
     Active Substance: SCUTELLARIA LATERIFLORA
     Indication: PRODUCT USED FOR UNKNOWN INDICATION
     Dosage: DOSAGE: UNKNOWN
     Route: 065
  3. JUNIPER [Interacting]
     Active Substance: HERBALS\HOMEOPATHICS
     Indication: PRODUCT USED FOR UNKNOWN INDICATION
     Dosage: DOSAGE: UNKNOWN
     Route: 065
  4. GOLDEN SEAL [Interacting]
     Active Substance: HERBALS\HOMEOPATHICS\GOLDENSEAL
     Indication: PRODUCT USED FOR UNKNOWN INDICATION
     Dosage: DOSAGE: UNKNOWN
     Route: 065
  5. SILYBUM MARIANUM [Interacting]
     Active Substance: MILK THISTLE
     Indication: PRODUCT USED FOR UNKNOWN INDICATION
     Dosage: DOSAGE: UNKNOWN
     Route: 065
  6. ALK ARTEMISIA VULGARIS [Interacting]
     Active Substance: ARTEMISIA VULGARIS POLLEN
     Indication: PRODUCT USED FOR UNKNOWN INDICATION
     Dosage: DOSAGE: UNKNOWN
     Route: 065
  7. CRANBERRY. [Interacting]
     Active Substance: CRANBERRY
     Indication: PRODUCT USED FOR UNKNOWN INDICATION
     Dosage: DOSAGE: UNKNOWN
     Route: 065
  8. HARPAGOPHYTUM PROCUMBENS [Interacting]
     Active Substance: HARPAGOPHYTUM PROCUMBENS ROOT
     Indication: PRODUCT USED FOR UNKNOWN INDICATION
     Dosage: DOSAGE: UNKNOWN
     Route: 065
  9. FILIPENDULA ULMARIA [Interacting]
     Active Substance: HERBALS\FILIPENDULA ULMARIA WHOLE
     Indication: PRODUCT USED FOR UNKNOWN INDICATION
     Dosage: DOSAGE: UNKNOWN
     Route: 065
  10. HOPS. [Interacting]
     Active Substance: HOPS
     Indication: PRODUCT USED FOR UNKNOWN INDICATION
     Dosage: DOSAGE: UNKNOWN
     Route: 065
  11. BOLDO (PEUMUS BOLDUS WHOLE) [Interacting]
     Active Substance: HERBALS\PEUMUS BOLDUS WHOLE
     Indication: PRODUCT USED FOR UNKNOWN INDICATION
     Dosage: DOSAGE: UNKNOWN
     Route: 065
  12. CHAPARRAL DANDELION BLEND [Interacting]
     Active Substance: HERBALS
     Indication: PRODUCT USED FOR UNKNOWN INDICATION
     Dosage: DOSAGE: UNKNOWN
     Route: 065
  13. XARELTO [Suspect]
     Active Substance: RIVAROXABAN
     Indication: ATRIAL FIBRILLATION
     Dosage: DOSAGE: UNKNOWN
     Route: 048
  14. UNCARIA TOMENTOSA BARK POWDER [Interacting]
     Active Substance: CAT^S CLAW
     Indication: PRODUCT USED FOR UNKNOWN INDICATION
     Dosage: DOSAGE: UNKNOWN
     Route: 065

REACTIONS (4)
  - Ischaemic stroke [Unknown]
  - Drug interaction [Unknown]
  - Drug ineffective [Unknown]
  - International normalised ratio increased [Unknown]
